FAERS Safety Report 7725129-1 (Version None)
Quarter: 2011Q3

REPORT INFORMATION
  Report Type: 
  Country: None (occurrence: None)
  Receive Date: 20110901
  Receipt Date: 20110823
  Transmission Date: 20111222
  Serious: Yes (Hospitalization)
  Sender: FDA-Public Use
  Company Number: US-US-EMD SERONO, INC.-7079107

PATIENT
  Sex: Female

DRUGS (5)
  1. REBIF [Suspect]
     Indication: MULTIPLE SCLEROSIS
     Route: 058
     Dates: start: 20070629
  2. BACLOFEN [Concomitant]
     Indication: MUSCLE SPASMS
  3. METFORMIN [Concomitant]
     Indication: BLOOD GLUCOSE INCREASED
  4. NAPROXEN [Concomitant]
     Indication: PAIN
  5. LOSARTAN [Concomitant]
     Indication: BLOOD PRESSURE

REACTIONS (2)
  - ASTHENIA [None]
  - FALL [None]
